FAERS Safety Report 8439905-3 (Version None)
Quarter: 2012Q2

REPORT INFORMATION
  Report Type: 
  Country: None (occurrence: None)
  Receive Date: 20120615
  Receipt Date: 20120612
  Transmission Date: 20120825
  Serious: No
  Sender: FDA-Public Use
  Company Number: US-TEVA-342950USA

PATIENT
  Sex: Female
  Weight: 104.42 kg

DRUGS (3)
  1. PLAN B ONE-STEP [Suspect]
     Indication: POST COITAL CONTRACEPTION
     Dosage: 1.5 MILLIGRAM;
     Route: 048
     Dates: start: 20120605, end: 20120605
  2. SYNTHROID [Concomitant]
     Indication: HYPOTHYROIDISM
     Dates: start: 20080101
  3. METFORMIN HCL [Concomitant]
     Indication: GLUCOSE TOLERANCE IMPAIRED
     Dates: start: 20080101

REACTIONS (1)
  - MENSTRUATION IRREGULAR [None]
